FAERS Safety Report 5266044-5 (Version None)
Quarter: 2007Q1

REPORT INFORMATION
  Report Type: 
  Country: None (occurrence: None)
  Receive Date: 20070313
  Receipt Date: 20070313
  Transmission Date: 20070707
  Serious: Yes (Death, Hospitalization)
  Sender: FDA-Public Use
  Company Number: None

PATIENT
  Age: 65 Year
  Sex: Female

DRUGS (1)
  1. ENOXAPARIN SODIUM [Suspect]
     Indication: DEEP VEIN THROMBOSIS
     Dosage: 60 MG SC Q24H
     Route: 058

REACTIONS (7)
  - HAEMATOMA [None]
  - HYDRONEPHROSIS [None]
  - MUSCLE HAEMORRHAGE [None]
  - POST PROCEDURAL HAEMORRHAGE [None]
  - PROCEDURAL HYPOTENSION [None]
  - RETROPERITONEAL HAEMORRHAGE [None]
  - URETERAL DISORDER [None]
